FAERS Safety Report 19603611 (Version 1)
Quarter: 2021Q3

REPORT INFORMATION
  Report Type: Spontaneous
  Country: DE (occurrence: DE)
  Receive Date: 20210724
  Receipt Date: 20210724
  Transmission Date: 20211014
  Serious: Yes (Hospitalization, Other)
  Sender: FDA-Public Use
  Company Number: DE-ACCORD-232664

PATIENT
  Age: 74 Year
  Sex: Male
  Weight: 76 kg

DRUGS (8)
  1. FINASTERID ABZ [Concomitant]
     Active Substance: FINASTERIDE
     Dosage: 5 MG, 0?0?1?0, TABLET
     Route: 048
  2. BENSERAZIDE HYDROCHLORIDE/LEVODOPA [Concomitant]
     Active Substance: BENSERAZIDE HYDROCHLORIDE\LEVODOPA
     Dosage: 25/100 MG, 1?0?0?0, TABLET
     Route: 048
  3. TAMSULOSIN/TAMSULOSIN HYDROCHLORIDE [Concomitant]
     Active Substance: TAMSULOSIN HYDROCHLORIDE
     Dosage: 0.4 MG, 1?0?0?0, CAPSULE
     Route: 048
  4. BENFOTIAMINE [Concomitant]
     Active Substance: BENFOTIAMINE
     Dosage: 300 MG, 1?0?0?0, TABLET
     Route: 048
  5. CEFPODOXIME/CEFPODOXIME PROXETIL [Concomitant]
     Active Substance: CEFPODOXIME PROXETIL
     Dosage: 200 MG, 1?0?1?0, TABLET
     Route: 048
  6. ACETYLSALICYLIC ACID [Suspect]
     Active Substance: ASPIRIN
     Indication: PRODUCT USED FOR UNKNOWN INDICATION
     Dosage: 100 MG, 1?0?0?0, TABLET
     Route: 048
  7. ROSUVASTATIN/ROSUVASTATIN CALCIUM [Concomitant]
     Active Substance: ROSUVASTATIN CALCIUM
     Dosage: 0?0?1?0, TABLET
     Route: 048
  8. PRASUGREL. [Suspect]
     Active Substance: PRASUGREL
     Indication: PRODUCT USED FOR UNKNOWN INDICATION
     Dosage: 10 MG, 1?0?0?0, TABLET
     Route: 048

REACTIONS (2)
  - Haematuria [Unknown]
  - Bladder tamponade [Unknown]

NARRATIVE: CASE EVENT DATE: 20210427
